FAERS Safety Report 22279340 (Version 1)
Quarter: 2023Q2

REPORT INFORMATION
  Report Type: Spontaneous
  Country: US (occurrence: None)
  Receive Date: 20230502
  Receipt Date: 20230502
  Transmission Date: 20230721
  Serious: Yes (unspecified)
  Sender: FDA-Public Use
  Company Number: None

PATIENT
  Age: 31 Year
  Sex: Male
  Weight: 58.5 kg

DRUGS (1)
  1. EPSOM SALTS [Suspect]
     Active Substance: MAGNESIUM SULFATE HEPTAHYDRATE
     Indication: Magnesium deficiency
     Dates: start: 20201212

REACTIONS (3)
  - Product label confusion [None]
  - Clumsiness [None]
  - Incorrect dose administered [None]

NARRATIVE: CASE EVENT DATE: 20210201
